FAERS Safety Report 8181707-X (Version None)
Quarter: 2012Q1

REPORT INFORMATION
  Report Type: 
  Country: None (occurrence: None)
  Receive Date: 20120302
  Receipt Date: 20110922
  Transmission Date: 20120608
  Serious: No
  Sender: FDA-Public Use
  Company Number: US-AMGEN-USASP2011049119

PATIENT
  Sex: Male
  Weight: 100 kg

DRUGS (4)
  1. NPLATE [Suspect]
     Indication: MYELODYSPLASTIC SYNDROME
     Dosage: 750 MUG, QWK
     Dates: start: 20110101
  2. NEURONTIN [Concomitant]
  3. THALIDOMIDE [Concomitant]
  4. ARANESP [Suspect]
     Indication: MYELODYSPLASTIC SYNDROME
     Dosage: UNK

REACTIONS (1)
  - FLUSHING [None]
